FAERS Safety Report 19086841 (Version 1)
Quarter: 2021Q2

REPORT INFORMATION
  Report Type: Spontaneous
  Country: US (occurrence: US)
  Receive Date: 20210402
  Receipt Date: 20210402
  Transmission Date: 20210717
  Serious: Yes (Hospitalization)
  Sender: FDA-Public Use
  Company Number: US-MYLANLABS-2021M1019818

PATIENT
  Age: 4 Month
  Sex: Male

DRUGS (1)
  1. TESTOSTERONE. [Suspect]
     Active Substance: TESTOSTERONE
     Indication: PRODUCT USED FOR UNKNOWN INDICATION
     Dosage: THE BOY^S GRANDFATHER USED TESTOSTERONE TRANSDERMAL GEL DAILY
     Route: 062

REACTIONS (2)
  - Accidental exposure to product by child [Recovering/Resolving]
  - Precocious puberty [Recovering/Resolving]
